FAERS Safety Report 4757495-3 (Version None)
Quarter: 2005Q3

REPORT INFORMATION
  Report Type: 
  Country: None (occurrence: None)
  Receive Date: 20050831
  Receipt Date: 20050819
  Transmission Date: 20060218
  Serious: Yes (Hospitalization)
  Sender: FDA-Public Use
  Company Number: PHBS2005GT12080

PATIENT
  Age: 69 Year
  Sex: Male

DRUGS (3)
  1. DIOVAN HCT [Suspect]
     Indication: HYPERTENSION
     Dosage: 160 VALS - 12.5 HCTZ MG/DAY
     Route: 048
  2. NORVASC [Concomitant]
     Dosage: 1 DF, BID
  3. MEDOCOR [Concomitant]
     Dosage: 1 DF, BID

REACTIONS (9)
  - AMERICAN TRYPANOSOMIASIS [None]
  - ATRIAL HYPERTROPHY [None]
  - ATRIOVENTRICULAR BLOCK FIRST DEGREE [None]
  - BUNDLE BRANCH BLOCK RIGHT [None]
  - CARDIAC DISORDER [None]
  - CARDIAC FAILURE CONGESTIVE [None]
  - CARDIOMEGALY [None]
  - MASS [None]
  - VENTRICULAR HYPERTROPHY [None]
